FAERS Safety Report 9358691 (Version 1)
Quarter: 2013Q2

REPORT INFORMATION
  Report Type: Spontaneous
  Country: JP (occurrence: JP)
  Receive Date: 20130620
  Receipt Date: 20130620
  Transmission Date: 20140414
  Serious: Yes (Other)
  Sender: FDA-Public Use
  Company Number: JP-GLAXOSMITHKLINE-B0899706A

PATIENT
  Sex: 0

DRUGS (6)
  1. PAXIL [Suspect]
     Route: 064
  2. PAXIL [Suspect]
     Route: 064
  3. PAXIL [Suspect]
     Route: 064
  4. SODIUM VALPROATE [Suspect]
     Route: 064
  5. SODIUM VALPROATE [Suspect]
     Route: 064
  6. SODIUM VALPROATE [Suspect]
     Route: 064

REACTIONS (3)
  - Respiratory failure [Recovered/Resolved]
  - Infection [Recovered/Resolved]
  - Foetal exposure during pregnancy [Unknown]
